FAERS Safety Report 6818973-6 (Version None)
Quarter: 2010Q2

REPORT INFORMATION
  Report Type: 
  Country: None (occurrence: None)
  Receive Date: 20100630
  Receipt Date: 20100622
  Transmission Date: 20101027
  Serious: Yes (Hospitalization)
  Sender: FDA-Public Use
  Company Number: 2010SA016871

PATIENT
  Age: 43 Year
  Sex: Female

DRUGS (8)
  1. SITAGLIPTIN PHOSPHATE (SITAGLIPTIN PHOSPHATE) [Suspect]
     Indication: TYPE 2 DIABETES MELLITUS
     Dosage: 100 MILLIGRAM;CAPSULE;ORAL;DAILY
     Route: 048
     Dates: start: 20091203
  2. PLACEBO [Suspect]
     Indication: TYPE 2 DIABETES MELLITUS
     Dosage: 15 MICROGRAM(S) INJECTION SOLUTION, 20 MICROGRAM DAILY, SC
     Route: 058
     Dates: start: 20091203, end: 20091217
  3. PLACEBO [Suspect]
     Indication: TYPE 2 DIABETES MELLITUS
     Dosage: 15 MICROGRAM(S) INJECTION SOLUTION, 20 MICROGRAM DAILY, SC
     Route: 058
     Dates: start: 20091218
  4. OPTICLICK [Suspect]
     Indication: TYPE 2 DIABETES MELLITUS
     Dosage: DAILY
     Dates: start: 20091123
  5. GEMFIBROZILO (GEMFIBROZIL) [Concomitant]
  6. ASPIRIN [Concomitant]
  7. METFORMIN HCL [Concomitant]
  8. DICLOFENAC SODIUM [Concomitant]

REACTIONS (5)
  - ALANINE AMINOTRANSFERASE INCREASED [None]
  - ASTHENIA [None]
  - BILE DUCT STONE [None]
  - BLOOD ALKALINE PHOSPHATASE INCREASED [None]
  - BLOOD GLUCOSE INCREASED [None]
